FAERS Safety Report 5950533-1 (Version None)
Quarter: 2008Q4

REPORT INFORMATION
  Report Type: 
  Country: None (occurrence: None)
  Receive Date: 20081112
  Receipt Date: 20080730
  Transmission Date: 20090506
  Serious: Yes (Death)
  Sender: FDA-Public Use
  Company Number: PR-ABBOTT-08P-131-0460226-00

PATIENT
  Sex: Male
  Weight: 124.4 kg

DRUGS (6)
  1. TARKA [Suspect]
     Indication: HYPERTENSION
     Dosage: 2MG/180MG
  2. TARKA [Suspect]
     Dosage: 4MG/240MG
     Dates: end: 20061201
  3. TARKA [Suspect]
  4. ANTIBIOTICS [Suspect]
     Indication: DRUG USE FOR UNKNOWN INDICATION
     Dates: start: 20061201
  5. ETANERCEPT [Suspect]
     Indication: PSORIATIC ARTHROPATHY
  6. HYDRODIUNL [Concomitant]
     Indication: HYPERTENSION

REACTIONS (4)
  - CARDIAC FAILURE CONGESTIVE [None]
  - DYSPNOEA PAROXYSMAL NOCTURNAL [None]
  - PHARYNGITIS [None]
  - PULMONARY OEDEMA [None]
